FAERS Safety Report 6985831-6 (Version None)
Quarter: 2010Q3

REPORT INFORMATION
  Report Type: 
  Country: None (occurrence: None)
  Receive Date: 20100915
  Receipt Date: 20100831
  Transmission Date: 20110219
  Serious: Yes (Other)
  Sender: FDA-Public Use
  Company Number: JP-BAYER-201038754GPV

PATIENT
  Age: 53 Year
  Sex: Male

DRUGS (16)
  1. DEPAS [Suspect]
     Indication: ANXIETY
     Route: 048
     Dates: start: 20081009, end: 20081128
  2. DEPAS [Suspect]
     Route: 048
     Dates: start: 20081201
  3. ASPIRIN [Suspect]
     Indication: PLATELET AGGREGATION INHIBITION
     Route: 048
     Dates: start: 20081009, end: 20081128
  4. ASPIRIN [Suspect]
     Route: 048
     Dates: start: 20081218
  5. MICARDIS [Suspect]
     Indication: HYPERTENSION
     Route: 048
     Dates: start: 20081009, end: 20081128
  6. LASIX [Suspect]
     Indication: CARDIOVASCULAR EVENT PROPHYLAXIS
     Route: 048
     Dates: start: 20081009, end: 20081128
  7. LASIX [Suspect]
     Route: 048
     Dates: start: 20081218
  8. HERBESSER R [Suspect]
     Indication: HYPERTENSION
     Route: 048
     Dates: start: 20081009, end: 20081128
  9. ALDACTONE [Suspect]
     Indication: CARDIOVASCULAR EVENT PROPHYLAXIS
     Route: 048
     Dates: start: 20081009, end: 20081128
  10. LIPITOR [Suspect]
     Indication: LIPIDS INCREASED
     Route: 048
     Dates: start: 20081009, end: 20081128
  11. ITOROL [Suspect]
     Indication: CORONARY ARTERY DILATATION
     Route: 048
     Dates: start: 20081210
  12. ITOROL [Suspect]
     Route: 048
     Dates: start: 20081009, end: 20081128
  13. WARFARIN SODIUM [Suspect]
     Indication: ANTICOAGULANT THERAPY
     Route: 048
     Dates: start: 20081009, end: 20081128
  14. WARFARIN SODIUM [Suspect]
     Route: 048
     Dates: start: 20081202
  15. GASTER D [Concomitant]
     Dates: start: 20081009, end: 20081128
  16. MAGMITT [Concomitant]
     Dates: start: 20081009, end: 20081128

REACTIONS (1)
  - HEPATITIS ACUTE [None]
